FAERS Safety Report 23167543 (Version 1)
Quarter: 2023Q4

REPORT INFORMATION
  Report Type: Report from Study
  Country: US (occurrence: US)
  Receive Date: 20231109
  Receipt Date: 20231109
  Transmission Date: 20240110
  Serious: Yes (Hospitalization, Other)
  Sender: FDA-Public Use
  Company Number: US-PFIZER INC-PV202300181517

PATIENT
  Age: 45 Year
  Sex: Male
  Weight: 83.9 kg

DRUGS (9)
  1. POTASSIUM CHLORIDE [Suspect]
     Active Substance: POTASSIUM CHLORIDE
     Dosage: UNK
  2. KEVEYIS [Suspect]
     Active Substance: DICHLORPHENAMIDE
     Indication: Paralysis
     Dosage: 50 MG, 2X/DAY
     Route: 048
     Dates: start: 20180907
  3. KEVEYIS [Suspect]
     Active Substance: DICHLORPHENAMIDE
     Indication: Familial periodic paralysis
     Dosage: 50 MG, 2X/DAY
     Route: 048
     Dates: start: 201809
  4. KEVEYIS [Suspect]
     Active Substance: DICHLORPHENAMIDE
     Dosage: 50 MG, 2X/DAY
     Route: 048
     Dates: start: 201809
  5. KEVEYIS [Suspect]
     Active Substance: DICHLORPHENAMIDE
     Dosage: UNK
     Dates: start: 202209
  6. KLOR-CON [Suspect]
     Active Substance: POTASSIUM CHLORIDE
     Indication: Paralysis
     Dosage: UNK, AS NEEDED
  7. KLOR-CON [Suspect]
     Active Substance: POTASSIUM CHLORIDE
     Indication: Familial periodic paralysis
  8. SPIRONOLACTONE [Concomitant]
     Active Substance: SPIRONOLACTONE
     Dosage: UNK
  9. VITAMIN D3 [Concomitant]
     Active Substance: CHOLECALCIFEROL
     Dosage: UNK

REACTIONS (24)
  - Oesophageal haemorrhage [Unknown]
  - Oesophageal injury [Recovering/Resolving]
  - Haematemesis [Recovering/Resolving]
  - Paralysis [Not Recovered/Not Resolved]
  - Dystonia [Unknown]
  - Renal impairment [Not Recovered/Not Resolved]
  - Nephrolithiasis [Unknown]
  - Seizure [Unknown]
  - Herpes simplex meningitis [Not Recovered/Not Resolved]
  - COVID-19 [Unknown]
  - Asthenia [Not Recovered/Not Resolved]
  - Myalgia [Unknown]
  - Oxygen saturation decreased [Unknown]
  - Post-acute COVID-19 syndrome [Unknown]
  - Carbon dioxide abnormal [Unknown]
  - Eye disorder [Unknown]
  - Productive cough [Not Recovered/Not Resolved]
  - Myotonia [Unknown]
  - Condition aggravated [Unknown]
  - Muscular weakness [Unknown]
  - Illness [Unknown]
  - Therapeutic product effect decreased [Unknown]
  - Fatigue [Unknown]
  - Dyspnoea [Unknown]

NARRATIVE: CASE EVENT DATE: 20180101
